FAERS Safety Report 9531010 (Version 1)
Quarter: 2013Q2

REPORT INFORMATION
  Report Type: Spontaneous
  Country: US (occurrence: None)
  Receive Date: 20130429
  Receipt Date: 20130429
  Transmission Date: 20140414
  Serious: Yes (Hospitalization)
  Sender: FDA-Public Use
  Company Number: JPI-P-019772

PATIENT
  Sex: Male

DRUGS (3)
  1. LUVOX CR (CAPSULES) (FLUVOXAMINE MALEATE) [Suspect]
     Indication: OBSESSIVE THOUGHTS
     Dosage: (UNKNOWN) , ORAL
     Route: 048
  2. TRAZODONE [Suspect]
     Indication: ANXIETY
  3. LORAZEPAM [Concomitant]
     Indication: ANXIETY

REACTIONS (5)
  - Convulsion [None]
  - Feeling abnormal [None]
  - Mood swings [None]
  - Tearfulness [None]
  - Extrapyramidal disorder [None]
